FAERS Safety Report 15533956 (Version 6)
Quarter: 2020Q4

REPORT INFORMATION
  Report Type: Spontaneous
  Country: US (occurrence: US)
  Receive Date: 20181019
  Receipt Date: 20201210
  Transmission Date: 20210113
  Serious: No
  Sender: FDA-Public Use
  Company Number: US-PFIZER INC-2018418690

PATIENT
  Age: 48 Year
  Sex: Female
  Weight: 98.43 kg

DRUGS (6)
  1. SKELAXIN [Suspect]
     Active Substance: METAXALONE
     Indication: FIBROMYALGIA
     Dosage: 800 MG, 3X/DAY (TAKE 1 TABLET THREE TIMES A DAY FOR 10 DAYS)
     Route: 048
     Dates: start: 201801
  2. SKELAXIN [Suspect]
     Active Substance: METAXALONE
     Indication: INTERVERTEBRAL DISC DEGENERATION
  3. SKELAXIN [Suspect]
     Active Substance: METAXALONE
     Indication: INTERVERTEBRAL DISC DEGENERATION
  4. SKELAXIN [Suspect]
     Active Substance: METAXALONE
     Indication: PAIN
  5. SKELAXIN [Suspect]
     Active Substance: METAXALONE
     Indication: SPINAL PAIN
  6. SKELAXIN [Suspect]
     Active Substance: METAXALONE
     Indication: SPINAL OSTEOARTHRITIS

REACTIONS (3)
  - Intervertebral disc protrusion [Not Recovered/Not Resolved]
  - Pain [Not Recovered/Not Resolved]
  - Fall [Not Recovered/Not Resolved]

NARRATIVE: CASE EVENT DATE: 2018
